FAERS Safety Report 18729609 (Version 1)
Quarter: 2021Q1

REPORT INFORMATION
  Report Type: Spontaneous
  Country: DE (occurrence: DE)
  Receive Date: 20210112
  Receipt Date: 20210112
  Transmission Date: 20210419
  Serious: Yes (Other)
  Sender: FDA-Public Use
  Company Number: DE-VERTEX PHARMACEUTICALS-2020-023197

PATIENT
  Sex: Female

DRUGS (14)
  1. KALYDECO [Suspect]
     Active Substance: IVACAFTOR
     Indication: CYSTIC FIBROSIS
     Dosage: 1 TAB IN THE EVENING
     Route: 048
     Dates: start: 20200901, end: 2020
  2. SALBUTAMOL [Concomitant]
     Active Substance: ALBUTEROL
     Dosage: UNK, TID
  3. KAFTRIO [Suspect]
     Active Substance: ELEXACAFTOR\IVACAFTOR\TEZACAFTOR
     Indication: CYSTIC FIBROSIS
     Dosage: 2 TABS IN THE MORNING
     Route: 048
     Dates: start: 20200901, end: 2020
  4. KALYDECO [Suspect]
     Active Substance: IVACAFTOR
     Dosage: REDUCED
     Route: 048
     Dates: start: 20201109
  5. INSULIN ASPART [Concomitant]
     Active Substance: INSULIN ASPART
  6. CREON [Concomitant]
     Active Substance: PANCRELIPASE AMYLASE\PANCRELIPASE LIPASE\PANCRELIPASE PROTEASE
     Dosage: 20000, 12?14 PER DAY
  7. KAFTRIO [Suspect]
     Active Substance: ELEXACAFTOR\IVACAFTOR\TEZACAFTOR
     Dosage: 2 TABLETS AM 1 TAB AM, ALTERNATING DAILY
     Route: 048
  8. AZITHROMYCIN ANHYDROUS. [Concomitant]
     Active Substance: AZITHROMYCIN ANHYDROUS
     Dosage: 3 TIMES PER WEEK
  9. BECLOMETASONE;FORMOTEROL [Concomitant]
     Active Substance: BECLOMETHASONE\FORMOTEROL
     Dosage: UNK, BID
  10. URSOFALK [Concomitant]
     Active Substance: URSODIOL
     Dosage: UNK, TID
  11. IRON [Concomitant]
     Active Substance: IRON
     Dosage: UNK, BID
  12. KAFTRIO [Suspect]
     Active Substance: ELEXACAFTOR\IVACAFTOR\TEZACAFTOR
     Dosage: 1 TAB IN MORNING
     Route: 048
     Dates: start: 20201109
  13. IPRATROPIUMBROMID [Concomitant]
     Active Substance: IPRATROPIUM BROMIDE
     Dosage: UNK, TID
  14. MUCOCLEAR [SODIUM CHLORIDE] [Concomitant]
     Dosage: UNK, TID

REACTIONS (2)
  - Exposure during pregnancy [Unknown]
  - Abortion spontaneous [Unknown]

NARRATIVE: CASE EVENT DATE: 2020
